FAERS Safety Report 20046927 (Version 1)
Quarter: 2021Q4

REPORT INFORMATION
  Report Type: Spontaneous
  Country: US (occurrence: US)
  Receive Date: 20211109
  Receipt Date: 20211109
  Transmission Date: 20220303
  Serious: Yes (Other)
  Sender: FDA-Public Use
  Company Number: US-GLAXOSMITHKLINE-US2021GSK228891

PATIENT
  Sex: Female

DRUGS (14)
  1. ZANTAC [Suspect]
     Active Substance: RANITIDINE HYDROCHLORIDE
     Indication: Gastrooesophageal reflux disease
     Dosage: UNK, QD
     Route: 065
     Dates: start: 1995, end: 2010
  2. ZANTAC [Suspect]
     Active Substance: RANITIDINE HYDROCHLORIDE
     Dosage: UNK, 2-3 TIMES/DAY
     Route: 065
     Dates: start: 1995, end: 2010
  3. ZANTAC [Suspect]
     Active Substance: RANITIDINE HYDROCHLORIDE
     Indication: Gastrooesophageal reflux disease
     Dosage: UNK, QD
     Route: 065
     Dates: start: 1995, end: 2010
  4. ZANTAC [Suspect]
     Active Substance: RANITIDINE HYDROCHLORIDE
     Dosage: UNK, 2-3 TIMES/DAY
     Route: 065
     Dates: start: 1995, end: 2010
  5. RANITIDINE [Suspect]
     Active Substance: RANITIDINE
     Indication: Gastrooesophageal reflux disease
     Dosage: UNK, QD
     Route: 065
     Dates: start: 2007, end: 2016
  6. RANITIDINE [Suspect]
     Active Substance: RANITIDINE
     Dosage: UNK, 2-3 TIMES/DAY
     Route: 065
     Dates: start: 2007, end: 2016
  7. RANITIDINE [Suspect]
     Active Substance: RANITIDINE
     Indication: Gastrooesophageal reflux disease
     Dosage: UNK, QD
     Route: 065
     Dates: start: 2007, end: 2016
  8. RANITIDINE [Suspect]
     Active Substance: RANITIDINE
     Dosage: UNK, 2-3 TIMES/DAY
     Route: 065
     Dates: start: 2007, end: 2016
  9. RANITIDINE [Suspect]
     Active Substance: RANITIDINE
     Indication: Gastrooesophageal reflux disease
     Dosage: UNK, QD
     Route: 065
     Dates: start: 2007, end: 2016
  10. RANITIDINE [Suspect]
     Active Substance: RANITIDINE
     Dosage: UNK, 2-3 TIMES/DAY
     Route: 065
     Dates: start: 2007, end: 2016
  11. RANITIDINE [Suspect]
     Active Substance: RANITIDINE
     Indication: Gastrooesophageal reflux disease
     Dosage: UNK, QD
     Route: 065
     Dates: start: 2007, end: 2016
  12. RANITIDINE [Suspect]
     Active Substance: RANITIDINE
     Dosage: UNK, 2-3 TIMES/DAY
     Route: 065
     Dates: start: 2007, end: 2016
  13. RANITIDINE HYDROCHLORIDE [Suspect]
     Active Substance: RANITIDINE HYDROCHLORIDE
     Indication: Gastrooesophageal reflux disease
     Dosage: 150 MG, QD
     Route: 065
     Dates: start: 2007, end: 2010
  14. RANITIDINE HYDROCHLORIDE [Suspect]
     Active Substance: RANITIDINE HYDROCHLORIDE
     Dosage: 150 MG, 2-3X/DAY
     Route: 065
     Dates: start: 2007, end: 2010

REACTIONS (1)
  - Breast cancer [Unknown]
